FAERS Safety Report 13794168 (Version 1)
Quarter: 2017Q3

REPORT INFORMATION
  Report Type: Spontaneous
  Country: US (occurrence: US)
  Receive Date: 20170726
  Receipt Date: 20170726
  Transmission Date: 20171127
  Serious: Yes (Hospitalization)
  Sender: FDA-Public Use
  Company Number: None

PATIENT
  Age: 57 Year
  Sex: Female
  Weight: 90.5 kg

DRUGS (1)
  1. CISPLATIN. [Suspect]
     Active Substance: CISPLATIN
     Dates: end: 20170524

REACTIONS (3)
  - Electrocardiogram abnormal [None]
  - Dyspnoea [None]
  - Chest X-ray abnormal [None]

NARRATIVE: CASE EVENT DATE: 20170711
